FAERS Safety Report 6934699-2 (Version None)
Quarter: 2010Q3

REPORT INFORMATION
  Report Type: 
  Country: None (occurrence: None)
  Receive Date: 20100820
  Receipt Date: 20100813
  Transmission Date: 20110219
  Serious: Yes (Death)
  Sender: FDA-Public Use
  Company Number: CA-AMGEN-KDC420659

PATIENT
  Sex: Male

DRUGS (19)
  1. DENOSUMAB [Suspect]
     Indication: METASTASES TO BONE
     Route: 058
     Dates: start: 20100310, end: 20100604
  2. TAXOTERE [Suspect]
     Route: 042
     Dates: start: 20100511
  3. PREDNISOLONE [Concomitant]
     Route: 048
     Dates: start: 20100511
  4. COUMADIN [Concomitant]
  5. NOVORAPID [Concomitant]
  6. CHOLECALCIFEROL [Concomitant]
  7. PREDNISONE [Concomitant]
  8. CALCIUM [Concomitant]
  9. QUININE SULFATE [Concomitant]
  10. ZOPICLONE [Concomitant]
     Route: 048
  11. LEVOTHYROXINE SODIUM [Concomitant]
     Route: 048
  12. ALLOPURINOL [Concomitant]
  13. ATORVASTATIN [Concomitant]
  14. AMLODIPINE [Concomitant]
  15. ASPIRIN [Concomitant]
  16. ATENOLOL [Concomitant]
  17. LANTUS [Concomitant]
  18. BICALUTAMIDE [Concomitant]
  19. MORPHINE SULFATE [Concomitant]
     Route: 048

REACTIONS (1)
  - INTERSTITIAL LUNG DISEASE [None]
